FAERS Safety Report 12596200 (Version 1)
Quarter: 2016Q3

REPORT INFORMATION
  Report Type: Spontaneous
  Country: HR (occurrence: HR)
  Receive Date: 20160726
  Receipt Date: 20160726
  Transmission Date: 20161109
  Serious: Yes (Other)
  Sender: FDA-Public Use
  Company Number: HR-TEVA-677800ACC

PATIENT
  Sex: Female

DRUGS (2)
  1. HALDOL [Suspect]
     Active Substance: HALOPERIDOL
     Dosage: (25X2MG) 5MG = TOXIC
     Route: 048
     Dates: start: 201606, end: 201606
  2. TEGRETOL [Suspect]
     Active Substance: CARBAMAZEPINE
     Dosage: (50X200MG), 10 G = TOXIC
     Route: 048
     Dates: start: 201606, end: 201606

REACTIONS (4)
  - Loss of consciousness [Unknown]
  - Overdose [Unknown]
  - Somnolence [Unknown]
  - Vomiting [Unknown]

NARRATIVE: CASE EVENT DATE: 201606
